FAERS Safety Report 7083653-1 (Version None)
Quarter: 2010Q4

REPORT INFORMATION
  Report Type: 
  Country: None (occurrence: None)
  Receive Date: 20101104
  Receipt Date: 20101022
  Transmission Date: 20110411
  Serious: Yes (Hospitalization)
  Sender: FDA-Public Use
  Company Number: US-ELI_LILLY_AND_COMPANY-US201010005350

PATIENT
  Age: 76 Year
  Sex: Male
  Weight: 61.224 kg

DRUGS (8)
  1. CYMBALTA [Suspect]
     Indication: DEPRESSION
     Dosage: 30 MG, DAILY (1/D)
     Route: 048
     Dates: start: 20100423, end: 20100921
  2. AXITINIB [Concomitant]
     Indication: METASTATIC RENAL CELL CARCINOMA
     Dosage: 5 MG, 2/D
     Route: 048
     Dates: start: 20100712, end: 20100921
  3. AXITINIB [Concomitant]
     Dosage: 1 MG, 2/D
     Route: 048
     Dates: start: 20100910, end: 20100921
  4. ACETYLSALICYLIC ACID [Concomitant]
     Dates: start: 19990101
  5. MIRALAX [Concomitant]
     Dates: start: 20081125
  6. DOCUSATE SODIUM [Concomitant]
     Dates: start: 20081125
  7. SENNA [Concomitant]
     Dates: start: 20100809
  8. LISINOPRIL /USA/ [Concomitant]
     Dates: start: 20100826

REACTIONS (1)
  - DELIRIUM [None]
